FAERS Safety Report 8329710-0 (Version None)
Quarter: 2012Q2

REPORT INFORMATION
  Report Type: 
  Country: None (occurrence: None)
  Receive Date: 20120502
  Receipt Date: 20120416
  Transmission Date: 20120825
  Serious: Yes (Hospitalization)
  Sender: FDA-Public Use
  Company Number: JP-GLAXOSMITHKLINE-B0796988A

PATIENT
  Sex: Male

DRUGS (10)
  1. LAMICTAL [Suspect]
     Indication: DEPRESSION
     Dosage: 25MG PER DAY
     Route: 048
     Dates: start: 20120315, end: 20120411
  2. LENDORMIN [Concomitant]
     Indication: INSOMNIA
     Dosage: .25MG PER DAY
     Route: 048
  3. DEPAKENE [Concomitant]
     Indication: DEPRESSION
     Dosage: 400MG PER DAY
     Route: 048
  4. PANTOSIN [Concomitant]
     Indication: DEPRESSION
     Dosage: 600MG PER DAY
     Route: 048
  5. ROHYPNOL [Concomitant]
     Indication: DEPRESSION
     Route: 048
  6. DEPAKENE [Concomitant]
     Dosage: 100MG PER DAY
  7. AMOBAN [Concomitant]
     Indication: DEPRESSION
     Dosage: 10MG PER DAY
     Route: 048
  8. CYMBALTA [Concomitant]
     Indication: DEPRESSION
     Dosage: 20MG PER DAY
     Route: 048
  9. LITHIUM CARBONATE [Concomitant]
     Indication: DEPRESSION
     Dosage: 600MG PER DAY
     Route: 048
  10. REFLEX (JAPAN) [Concomitant]
     Indication: DEPRESSION
     Dosage: 45MG PER DAY
     Route: 048

REACTIONS (6)
  - DRUG ERUPTION [None]
  - NASOPHARYNGITIS [None]
  - THROMBOCYTOPENIA [None]
  - ERYTHEMA [None]
  - C-REACTIVE PROTEIN INCREASED [None]
  - PYREXIA [None]
